FAERS Safety Report 7727279-2 (Version None)
Quarter: 2011Q3

REPORT INFORMATION
  Report Type: 
  Country: None (occurrence: None)
  Receive Date: 20110831
  Receipt Date: 20110816
  Transmission Date: 20111222
  Serious: Yes (Death, Hospitalization, Other)
  Sender: FDA-Public Use
  Company Number: 2011MA012003

PATIENT
  Age: 77 Year
  Sex: Male

DRUGS (4)
  1. IRINOTECAN HYDROCHLORIDE [Suspect]
     Indication: METASTATIC GASTRIC CANCER
  2. CISPLATIN [Suspect]
     Indication: METASTATIC GASTRIC CANCER
     Dosage: 60 MG/M**;IART
     Route: 013
  3. PACLITAXEL [Suspect]
     Indication: METASTATIC GASTRIC CANCER
  4. S-1 (NO PREF. NAME) [Suspect]
     Indication: METASTATIC GASTRIC CANCER
     Dosage: 65 MG/M**2;QD;PO
     Route: 048

REACTIONS (12)
  - ASPARTATE AMINOTRANSFERASE INCREASED [None]
  - PORTAL VEIN THROMBOSIS [None]
  - GAMMA-GLUTAMYLTRANSFERASE INCREASED [None]
  - ALPHA 1 FOETOPROTEIN INCREASED [None]
  - CALCINOSIS [None]
  - CARCINOEMBRYONIC ANTIGEN INCREASED [None]
  - ALANINE AMINOTRANSFERASE INCREASED [None]
  - LEUKOPENIA [None]
  - THROMBOCYTOPENIA [None]
  - BLOOD ALKALINE PHOSPHATASE INCREASED [None]
  - METASTASES TO LIVER [None]
  - HEPATIC NEOPLASM [None]
